FAERS Safety Report 22064664 (Version 1)
Quarter: 2023Q1

REPORT INFORMATION
  Report Type: Spontaneous
  Country: US (occurrence: US)
  Receive Date: 20230306
  Receipt Date: 20230306
  Transmission Date: 20230418
  Serious: No
  Sender: FDA-Public Use
  Company Number: US-AMNEAL PHARMACEUTICALS-2022-AMRX-04267

PATIENT
  Sex: Female
  Weight: 51.701 kg

DRUGS (1)
  1. DIFLUPREDNATE [Suspect]
     Active Substance: DIFLUPREDNATE
     Indication: Product used for unknown indication
     Dosage: 0.5% 2 TIMES A DAY
     Route: 047
     Dates: start: 202210

REACTIONS (3)
  - Visual impairment [Recovered/Resolved]
  - Eyelid irritation [Recovered/Resolved]
  - Eye irritation [Recovered/Resolved]
